FAERS Safety Report 18245340 (Version 1)
Quarter: 2020Q3

REPORT INFORMATION
  Report Type: Report from Study
  Country: None (occurrence: US)
  Receive Date: 20200909
  Receipt Date: 20200909
  Transmission Date: 20201103
  Serious: Yes (Hospitalization, Other)
  Sender: FDA-Public Use
  Company Number: US-ABBVIE-20K-163-3543144-00

PATIENT
  Age: 85 Year
  Sex: Female
  Weight: 44.49 kg

DRUGS (2)
  1. DUOPA [Suspect]
     Active Substance: CARBIDOPA\LEVODOPA
     Indication: PARKINSON^S DISEASE
     Route: 050
     Dates: start: 20180523, end: 20200630
  2. DUOPA [Suspect]
     Active Substance: CARBIDOPA\LEVODOPA

REACTIONS (15)
  - Hallucination [Not Recovered/Not Resolved]
  - Fall [Recovered/Resolved]
  - Bone neoplasm [Not Recovered/Not Resolved]
  - Dementia [Not Recovered/Not Resolved]
  - Gait inability [Not Recovered/Not Resolved]
  - Dysphonia [Not Recovered/Not Resolved]
  - Head injury [Recovered/Resolved]
  - Bone cancer [Not Recovered/Not Resolved]
  - Joint dislocation [Recovered/Resolved]
  - Loss of personal independence in daily activities [Not Recovered/Not Resolved]
  - Rib fracture [Not Recovered/Not Resolved]
  - Living in residential institution [Not Recovered/Not Resolved]
  - Spinal fracture [Not Recovered/Not Resolved]
  - Asthenia [Recovering/Resolving]
  - Unevaluable event [Recovering/Resolving]

NARRATIVE: CASE EVENT DATE: 2018
